FAERS Safety Report 4479950-6 (Version None)
Quarter: 2004Q3

REPORT INFORMATION
  Report Type: 
  Country: None (occurrence: None)
  Receive Date: 20040923
  Receipt Date: 20040601
  Transmission Date: 20050211
  Serious: No
  Sender: FDA-Public Use
  Company Number: USA040668895

PATIENT
  Age: 79 Year
  Sex: Female
  Weight: 41 kg

DRUGS (6)
  1. FORTEO [Suspect]
     Indication: OSTEOPOROSIS
     Dosage: 20 UG DAY
     Dates: start: 20040510, end: 20040529
  2. COUMADIN [Concomitant]
  3. LANOXIN [Concomitant]
  4. FOSAMAX [Concomitant]
  5. VERAPAMIL [Concomitant]
  6. CITRACAL (CALCIUM CITRATE) [Concomitant]

REACTIONS (5)
  - BLISTER [None]
  - FEELING ABNORMAL [None]
  - INJECTION SITE HAEMORRHAGE [None]
  - OEDEMA PERIPHERAL [None]
  - RASH [None]
